FAERS Safety Report 20524936 (Version 4)
Quarter: 2024Q2

REPORT INFORMATION
  Report Type: Spontaneous
  Country: FR (occurrence: FR)
  Receive Date: 20220228
  Receipt Date: 20240524
  Transmission Date: 20240717
  Serious: Yes (Life-Threatening, Hospitalization, Other)
  Sender: FDA-Public Use
  Company Number: FR-BRISTOL-MYERS SQUIBB COMPANY-BMS-2022-026916

PATIENT
  Age: 78 Year
  Sex: Male
  Weight: 75 kg

DRUGS (4)
  1. NIVOLUMAB [Suspect]
     Active Substance: NIVOLUMAB
     Indication: Epithelioid mesothelioma
     Route: 042
     Dates: start: 20210820
  2. NIVOLUMAB [Suspect]
     Active Substance: NIVOLUMAB
     Route: 042
     Dates: end: 20210930
  3. IPILIMUMAB [Suspect]
     Active Substance: IPILIMUMAB
     Indication: Epithelioid mesothelioma
     Route: 042
     Dates: start: 20210820
  4. IPILIMUMAB [Suspect]
     Active Substance: IPILIMUMAB
     Dosage: ??
     Route: 042
     Dates: end: 20210930

REACTIONS (5)
  - Colitis [Recovered/Resolved]
  - Lung disorder [Recovered/Resolved]
  - Renal failure [Not Recovered/Not Resolved]
  - Respiratory distress [Unknown]
  - Weight decreased [Unknown]

NARRATIVE: CASE EVENT DATE: 20211018
